FAERS Safety Report 25094441 (Version 2)
Quarter: 2025Q2

REPORT INFORMATION
  Report Type: Spontaneous
  Country: IT (occurrence: IT)
  Receive Date: 20250319
  Receipt Date: 20250407
  Transmission Date: 20250717
  Serious: Yes (Life-Threatening, Hospitalization, Other)
  Sender: CHEPLAPHARM
  Company Number: None

PATIENT
  Age: 25 Year
  Sex: Male
  Weight: 92 kg

DRUGS (10)
  1. CLONAZEPAM [Suspect]
     Active Substance: CLONAZEPAM
     Indication: Anxiety
     Dosage: DAILY DOSE: 30 DROP
     Route: 048
     Dates: start: 201808, end: 202409
  2. CLONAZEPAM [Suspect]
     Active Substance: CLONAZEPAM
     Indication: Anxiety
     Route: 048
  3. CLONAZEPAM [Suspect]
     Active Substance: CLONAZEPAM
     Indication: Anxiety
     Route: 048
  4. EN [Suspect]
     Active Substance: DELORAZEPAM
     Indication: Anxiety
     Dates: start: 2024
  5. Folic acid hydrate [Concomitant]
  6. BRINTELLIX [Concomitant]
     Active Substance: VORTIOXETINE HYDROBROMIDE
  7. MELATONIN [Concomitant]
     Active Substance: MELATONIN
  8. CITALOPRAM HYDROBROMIDE [Concomitant]
     Active Substance: CITALOPRAM HYDROBROMIDE
  9. Levopraid [Concomitant]
  10. XYZAL [Concomitant]
     Active Substance: LEVOCETIRIZINE DIHYDROCHLORIDE

REACTIONS (17)
  - Migraine with aura [Recovered/Resolved with Sequelae]
  - Confusional state [Recovered/Resolved with Sequelae]
  - Vomiting [Recovered/Resolved with Sequelae]
  - Nausea [Recovered/Resolved with Sequelae]
  - Paraesthesia [Recovered/Resolved with Sequelae]
  - Headache [Recovering/Resolving]
  - Drug ineffective [Unknown]
  - Epigastric discomfort [Unknown]
  - Hyperhidrosis [Unknown]
  - Dyspnoea [Unknown]
  - Agitation [Unknown]
  - Withdrawal syndrome [Unknown]
  - Aphasia [Unknown]
  - Speech disorder [Recovered/Resolved with Sequelae]
  - Nervous system disorder [Unknown]
  - Dyslexia [Unknown]
  - Dysgraphia [Unknown]

NARRATIVE: CASE EVENT DATE: 20240510
